FAERS Safety Report 5035827-9 (Version None)
Quarter: 2006Q2

REPORT INFORMATION
  Report Type: 
  Country: None (occurrence: None)
  Receive Date: 20060526
  Receipt Date: 20060127
  Transmission Date: 20061013
  Serious: No
  Sender: FDA-Public Use
  Company Number: 221571

PATIENT
  Age: 51 Year
  Sex: Female

DRUGS (5)
  1. RAPTIVA [Suspect]
     Indication: PSORIASIS
     Dosage: 0.9 ML, 1/WEEK, SUBCUTANEOUS
     Route: 058
     Dates: start: 20051101
  2. TOPAMAX [Concomitant]
  3. TRILEPTAL [Concomitant]
  4. SEROQUEL [Concomitant]
  5. LEXAPRO [Concomitant]

REACTIONS (1)
  - FATIGUE [None]
